FAERS Safety Report 15610089 (Version 1)
Quarter: 2018Q4

REPORT INFORMATION
  Report Type: Spontaneous
  Country: US (occurrence: US)
  Receive Date: 20181113
  Receipt Date: 20181113
  Transmission Date: 20190205
  Serious: Yes (Hospitalization, Other)
  Sender: FDA-Public Use
  Company Number: US-TEVA-2018-US-970029

PATIENT
  Sex: Female

DRUGS (1)
  1. CLONAZEPAM. [Suspect]
     Active Substance: CLONAZEPAM
     Route: 065
     Dates: end: 2018

REACTIONS (6)
  - Anxiety [Unknown]
  - Abdominal discomfort [Unknown]
  - Product substitution issue [Unknown]
  - Loss of consciousness [Unknown]
  - Bipolar disorder [Unknown]
  - Headache [Recovered/Resolved]
